FAERS Safety Report 4487805-6 (Version None)
Quarter: 2004Q4

REPORT INFORMATION
  Report Type: 
  Country: None (occurrence: None)
  Receive Date: 20041027
  Receipt Date: 20041027
  Transmission Date: 20050328
  Serious: Yes (Hospitalization)
  Sender: FDA-Public Use
  Company Number: None

PATIENT
  Age: 21 Year
  Sex: Male
  Weight: 68.0396 kg

DRUGS (2)
  1. MIRAPHEN   PSE TABLET   SA #222 ON TABLET [Suspect]
     Indication: COUGH
     Dosage: 1 TABLET 2X DAILY
  2. MIRAPHEN   PSE TABLET   SA #222 ON TABLET [Suspect]
     Indication: NASAL CONGESTION
     Dosage: 1 TABLET 2X DAILY

REACTIONS (2)
  - CATHETERISATION CARDIAC ABNORMAL [None]
  - MYOCARDIAL INFARCTION [None]
